FAERS Safety Report 6660575-9 (Version None)
Quarter: 2010Q1

REPORT INFORMATION
  Report Type: 
  Country: None (occurrence: None)
  Receive Date: 20100331
  Receipt Date: 20100325
  Transmission Date: 20100710
  Serious: Yes (Hospitalization)
  Sender: FDA-Public Use
  Company Number: JP-BRISTOL-MYERS SQUIBB COMPANY-15023922

PATIENT
  Age: 55 Year
  Sex: Female
  Weight: 37 kg

DRUGS (10)
  1. TAXOL [Suspect]
     Indication: BREAST CANCER RECURRENT
     Dosage: 18JUN08-01JUN09 10JUN-09OCT09 18JUN09:D1;COURSE 1 01JUN09:D1;COURSE 13 09OCT09:D15;COURSE 4
     Route: 041
     Dates: start: 20080618, end: 20091009
  2. CYCLOPHOSPHAMIDE [Suspect]
     Indication: BREAST CANCER RECURRENT
     Dosage: 1 DF = 600
     Dates: start: 20100226
  3. AVASTIN [Suspect]
     Indication: BREAST CANCER RECURRENT
     Dosage: 18JUN09:D1;COURSE 1 01JUN09:D1;COURSE 13 09OCT09:D15;COURSE 4
     Route: 041
     Dates: start: 20080618, end: 20090601
  4. EPIRUBICIN [Suspect]
     Indication: BREAST CANCER RECURRENT
     Dosage: 1 DF = 60
     Dates: start: 20100226
  5. CAPECITABINE [Suspect]
     Indication: BREAST CANCER RECURRENT
     Dosage: ON 09-FEB-2010 2ND COURSE
     Dates: start: 20091223
  6. FEMARA [Suspect]
     Indication: BREAST CANCER RECURRENT
     Dosage: TABS
     Route: 048
     Dates: start: 20091020, end: 20091222
  7. ACETAMINOPHEN [Concomitant]
     Indication: PYREXIA
     Dosage: FORMULATION:FGRAN
     Route: 048
     Dates: start: 20100303, end: 20100306
  8. CIPROFLOXACIN HCL [Concomitant]
     Indication: PYREXIA
     Dosage: TABS
     Route: 048
     Dates: start: 20100303, end: 20100306
  9. CLAVULANATE POTASSIUM [Concomitant]
     Indication: PYREXIA
     Dosage: TABS
     Route: 048
     Dates: start: 20100303, end: 20100306
  10. MAGNESIUM OXIDE [Concomitant]
     Indication: IRRITABLE BOWEL SYNDROME
     Dosage: FGRAN
     Route: 048
     Dates: start: 20080702

REACTIONS (1)
  - THROMBOPHLEBITIS [None]
